FAERS Safety Report 11422607 (Version 1)
Quarter: 2015Q3

REPORT INFORMATION
  Report Type: Spontaneous
  Country: US (occurrence: None)
  Receive Date: 20150826
  Receipt Date: 20150826
  Transmission Date: 20151125
  Serious: No
  Sender: FDA-Public Use
  Company Number: None

PATIENT
  Age: 6 Year
  Sex: Male
  Weight: 18.9 kg

DRUGS (2)
  1. MERCAPTOPURINE. [Suspect]
     Active Substance: MERCAPTOPURINE
     Dates: end: 20150323
  2. METHOTREXATE [Suspect]
     Active Substance: METHOTREXATE
     Dates: end: 20150317

REACTIONS (4)
  - Viral infection [None]
  - Transaminases increased [None]
  - Febrile neutropenia [None]
  - Rhinorrhoea [None]

NARRATIVE: CASE EVENT DATE: 20150331
